FAERS Safety Report 6959919-X (Version None)
Quarter: 2010Q3

REPORT INFORMATION
  Report Type: 
  Country: None (occurrence: None)
  Receive Date: 20100901
  Receipt Date: 20100824
  Transmission Date: 20110219
  Serious: No
  Sender: FDA-Public Use
  Company Number: US-BIOGENIDEC-2010BI029795

PATIENT
  Age: 45 Year
  Sex: Female

DRUGS (1)
  1. AVONEX [Suspect]
     Indication: MULTIPLE SCLEROSIS
     Route: 030
     Dates: start: 20090701

REACTIONS (13)
  - COORDINATION ABNORMAL [None]
  - DEVICE DIFFICULT TO USE [None]
  - DEVICE OCCLUSION [None]
  - DEVICE RELATED INFECTION [None]
  - HYPOAESTHESIA [None]
  - MULTIPLE SCLEROSIS RELAPSE [None]
  - MUSCLE SPASMS [None]
  - PARAESTHESIA [None]
  - PERONEAL NERVE PALSY [None]
  - STAPHYLOCOCCAL INFECTION [None]
  - STRESS [None]
  - URINARY INCONTINENCE [None]
  - URINARY RETENTION [None]
